FAERS Safety Report 6895221-2 (Version None)
Quarter: 2010Q3

REPORT INFORMATION
  Report Type: 
  Country: None (occurrence: None)
  Receive Date: 20100802
  Receipt Date: 20100722
  Transmission Date: 20110219
  Serious: Yes (Other)
  Sender: FDA-Public Use
  Company Number: PHHO2010AT11166

PATIENT

DRUGS (4)
  1. ZOLEDRONATE T29581+ [Suspect]
     Indication: BREAST CANCER
     Dosage: 4MG EVERY 6 MONTHS
     Route: 042
     Dates: start: 20050629, end: 20080625
  2. NOLVADEX [Concomitant]
     Indication: BREAST CANCER
  3. CALCIUM [Concomitant]
  4. VITAMIN D [Concomitant]

REACTIONS (3)
  - LEIOMYOMA [None]
  - OOPHORECTOMY [None]
  - TUMOUR EXCISION [None]
